FAERS Safety Report 25024610 (Version 1)
Quarter: 2025Q1

REPORT INFORMATION
  Report Type: Spontaneous
  Country: US (occurrence: None)
  Receive Date: 20250227
  Receipt Date: 20250227
  Transmission Date: 20250408
  Serious: Yes (Life-Threatening)
  Sender: FDA-CTU
  Company Number: None

PATIENT
  Age: 84 Year
  Sex: Male
  Weight: 42 kg

DRUGS (1)
  1. NOREPINEPHRINE [Suspect]
     Active Substance: NOREPINEPHRINE

REACTIONS (5)
  - Blood pressure decreased [None]
  - Device alarm issue [None]
  - Device computer issue [None]
  - Device delivery system issue [None]
  - Incorrect dose administered [None]

NARRATIVE: CASE EVENT DATE: 20250226
